FAERS Safety Report 24343091 (Version 1)
Quarter: 2024Q3

REPORT INFORMATION
  Report Type: Spontaneous
  Country: US (occurrence: US)
  Receive Date: 20240920
  Receipt Date: 20240920
  Transmission Date: 20241017
  Serious: No
  Sender: BRAEBURN PHARMACEUTICALS
  Company Number: US-BRAEBURN-US-BRA-24-000550

PATIENT
  Sex: Female

DRUGS (7)
  1. BRIXADI [Suspect]
     Active Substance: BUPRENORPHINE
     Indication: Drug use disorder
     Dosage: 64 MILLIGRAM, MONTHLY
     Route: 065
     Dates: start: 202310, end: 202311
  2. BRIXADI [Suspect]
     Active Substance: BUPRENORPHINE
     Dosage: 96 MILLIGRAM
     Route: 065
     Dates: start: 202312, end: 202404
  3. BRIXADI [Suspect]
     Active Substance: BUPRENORPHINE
     Dosage: 128 MILLIGRAM, MONTHLY
     Route: 065
     Dates: start: 202405
  4. MOUNJARO [Concomitant]
     Active Substance: TIRZEPATIDE
     Indication: Product used for unknown indication
     Dosage: UNK
     Route: 065
  5. METOPROLOL [Concomitant]
     Active Substance: METOPROLOL
     Indication: Product used for unknown indication
     Dosage: UNK
     Route: 065
  6. NURTEC ODT [Concomitant]
     Active Substance: RIMEGEPANT SULFATE
     Indication: Product used for unknown indication
     Dosage: UNK
     Route: 065
  7. WELLBUTRIN [Concomitant]
     Active Substance: BUPROPION HYDROCHLORIDE
     Indication: Product used for unknown indication
     Dosage: UNK
     Route: 065

REACTIONS (6)
  - Malabsorption from injection site [Not Recovered/Not Resolved]
  - Drug ineffective [Unknown]
  - Withdrawal syndrome [Not Recovered/Not Resolved]
  - Patient dissatisfaction with treatment [Unknown]
  - Therapeutic response shortened [Unknown]
  - Drug level below therapeutic [Not Recovered/Not Resolved]
